FAERS Safety Report 6940663-X (Version None)
Quarter: 2010Q3

REPORT INFORMATION
  Report Type: 
  Country: None (occurrence: None)
  Receive Date: 20100825
  Receipt Date: 20100820
  Transmission Date: 20110219
  Serious: Yes (Other)
  Sender: FDA-Public Use
  Company Number: US-ROCHE-666433

PATIENT
  Sex: Female

DRUGS (4)
  1. PEGASYS [Suspect]
     Indication: HEPATITIS C
     Dosage: FORM: PFS
     Route: 065
     Dates: start: 20091016, end: 20100101
  2. PEGASYS [Suspect]
     Dosage: PATIENT IN WEEK 45 OF THERAPY
     Route: 065
     Dates: start: 20100101
  3. RIBAVIRIN [Suspect]
     Indication: HEPATITIS C
     Dosage: DIVIDED DOSES,
     Route: 048
     Dates: start: 20091016, end: 20100101
  4. RIBAVIRIN [Suspect]
     Dosage: DIVIDED DOSES; PATIENT IN WEEK 45 OF THERAPY
     Route: 048
     Dates: start: 20100101

REACTIONS (12)
  - ARTHRALGIA [None]
  - DRY SKIN [None]
  - DYSPNOEA [None]
  - FATIGUE [None]
  - GLAUCOMA [None]
  - HAEMOGLOBIN DECREASED [None]
  - NAUSEA [None]
  - RED BLOOD CELL COUNT DECREASED [None]
  - STOMATITIS [None]
  - UPPER RESPIRATORY TRACT INFECTION [None]
  - URINARY INCONTINENCE [None]
  - WHITE BLOOD CELL COUNT DECREASED [None]
